FAERS Safety Report 7367519-5 (Version None)
Quarter: 2011Q1

REPORT INFORMATION
  Report Type: 
  Country: None (occurrence: None)
  Receive Date: 20110322
  Receipt Date: 20110225
  Transmission Date: 20110831
  Serious: Yes (Hospitalization, Other)
  Sender: FDA-Public Use
  Company Number: US-BAYER-200940860NA

PATIENT
  Sex: Female
  Weight: 60.771 kg

DRUGS (4)
  1. TRASYLOL [Suspect]
     Indication: ARTERIOVENOUS FISTULA
  2. DOBUTAMINE [Concomitant]
     Indication: PRODUCT USED FOR UNKNOWN INDICATION
  3. COUMADIN [Concomitant]
     Indication: PRODUCT USED FOR UNKNOWN INDICATION
  4. TRASYLOL [Suspect]
     Indication: HEART TRANSPLANT
     Dosage: INTIAL(TEST) DOSE: 1ML , 50ML/HOUR
     Route: 042
     Dates: start: 20070403, end: 20070404

REACTIONS (9)
  - FEAR [None]
  - DEPRESSION [None]
  - INJURY [None]
  - PAIN [None]
  - ANXIETY [None]
  - ANHEDONIA [None]
  - RENAL FAILURE [None]
  - RENAL FAILURE ACUTE [None]
  - UNEVALUABLE EVENT [None]
